FAERS Safety Report 8936758 (Version 2)
Quarter: 2012Q4

REPORT INFORMATION
  Report Type: 
  Country: FR (occurrence: FR)
  Receive Date: 20121130
  Receipt Date: 20121221
  Transmission Date: 20130627
  Serious: Yes (Hospitalization)
  Sender: FDA-Public Use
  Company Number: FR-MERCK-1211FRA011918

PATIENT
  Age: 49 Year
  Sex: Female

DRUGS (2)
  1. ISENTRESS [Suspect]
     Indication: ANTIRETROVIRAL THERAPY
     Dosage: 400 mg, bid
     Route: 048
     Dates: start: 20120710, end: 20120818
  2. CELSENTRI [Suspect]
     Indication: ANTIRETROVIRAL THERAPY
     Dosage: UNK
     Dates: start: 20120710, end: 20120818

REACTIONS (7)
  - Drug reaction with eosinophilia and systemic symptoms [Recovered/Resolved]
  - Face oedema [Recovered/Resolved]
  - Eye pain [Recovered/Resolved]
  - Asthenia [Recovered/Resolved]
  - Rash maculo-papular [Recovered/Resolved]
  - Proteinuria [Recovered/Resolved]
  - Hepatocellular injury [Recovered/Resolved]
